FAERS Safety Report 6181515-5 (Version None)
Quarter: 2009Q2

REPORT INFORMATION
  Report Type: 
  Country: None (occurrence: None)
  Receive Date: 20090506
  Receipt Date: 20090427
  Transmission Date: 20091009
  Serious: Yes (Other)
  Sender: FDA-Public Use
  Company Number: AU-ABBOTT-09P-008-0570028-00

PATIENT
  Age: 32 Year
  Sex: Male

DRUGS (2)
  1. RITONAVIR SOFT GELATIN CAPSULES [Suspect]
     Indication: HIV INFECTION
     Dosage: 100MG DAILY FOR 10 DAYS, THEN STOPPED X10 DAYS, REINTRODUCED DAY 25 COMBO THERAPY
     Route: 048
  2. SCH532706 [Concomitant]
     Indication: HIV INFECTION
     Dosage: 60 MG DAILYX10 DAYS, STOPPED 14 DAYS, THEN REINTROD DAY 25 AS COMBO ANTIRETROVIRAL
     Route: 048

REACTIONS (1)
  - PERICARDITIS [None]
